FAERS Safety Report 18519843 (Version 6)
Quarter: 2021Q3

REPORT INFORMATION
  Report Type: Spontaneous
  Country: US (occurrence: US)
  Receive Date: 20201119
  Receipt Date: 20210827
  Transmission Date: 20211014
  Serious: No
  Sender: FDA-Public Use
  Company Number: US-SA-2020SA323696

PATIENT
  Age: 46 Year
  Sex: Female

DRUGS (4)
  1. CAPRELSA [Suspect]
     Active Substance: VANDETANIB
     Dosage: 200 MG, QD
     Route: 048
     Dates: start: 20201022
  2. LIPITOR [Concomitant]
     Active Substance: ATORVASTATIN CALCIUM
     Dosage: UNK
  3. CAPRELSA [Suspect]
     Active Substance: VANDETANIB
     Indication: THYROID CANCER
     Dosage: 300 MG, QD (IN THE MORNING WITHOUT FOOD)
     Route: 048
     Dates: start: 20201022
  4. GABAPENTIN. [Concomitant]
     Active Substance: GABAPENTIN
     Dosage: UNK

REACTIONS (17)
  - Arthralgia [Unknown]
  - Fibromyalgia [Unknown]
  - Neoplasm progression [Unknown]
  - Trigger finger [Unknown]
  - Rash erythematous [Recovered/Resolved]
  - Skin exfoliation [Unknown]
  - Muscle spasms [Unknown]
  - Chest pain [Unknown]
  - Peripheral swelling [Unknown]
  - Insomnia [Unknown]
  - Blood pressure increased [Unknown]
  - Asthenia [Unknown]
  - Muscular weakness [Unknown]
  - Rash erythematous [Unknown]
  - Pain [Unknown]
  - Acne cystic [Recovered/Resolved]
  - Acne [Unknown]
